FAERS Safety Report 7620584-X (Version None)
Quarter: 2011Q3

REPORT INFORMATION
  Report Type: 
  Country: None (occurrence: None)
  Receive Date: 20110719
  Receipt Date: 20110708
  Transmission Date: 20111222
  Serious: Yes (Hospitalization)
  Sender: FDA-Public Use
  Company Number: DE-ROCHE-788007

PATIENT
  Sex: Female
  Weight: 158 kg

DRUGS (4)
  1. DOCETAXEL [Suspect]
     Indication: BREAST CANCER
     Dosage: DSOE FORM :UNSPECIFIED.
     Route: 042
     Dates: start: 20110609
  2. BISOPROLOL [Concomitant]
     Indication: HYPERTENSION
     Route: 048
     Dates: start: 19910101
  3. CAPECITABINE [Suspect]
     Indication: BREAST CANCER
     Dosage: DOSE: 825 MG/M2, TWICE PER DAY, FROM DAYS 1 TO 14.
     Route: 048
     Dates: start: 20110609, end: 20110701
  4. L-THYROX [Concomitant]
     Indication: THYROIDECTOMY
     Dosage: DOSE: 24 MG LEVOTHROSINE
     Route: 048
     Dates: start: 20050101

REACTIONS (3)
  - SUBILEUS [None]
  - FEBRILE NEUTROPENIA [None]
  - PANCREATIC ATROPHY [None]
